FAERS Safety Report 7554326-3 (Version None)
Quarter: 2011Q2

REPORT INFORMATION
  Report Type: 
  Country: None (occurrence: None)
  Receive Date: 20110617
  Receipt Date: 20110614
  Transmission Date: 20111010
  Serious: No
  Sender: FDA-Public Use
  Company Number: US-TEVA-286638USA

PATIENT
  Sex: Female
  Weight: 59.02 kg

DRUGS (3)
  1. LOESTRIN 24 FE [Concomitant]
     Indication: CONTRACEPTION
  2. PLAN B ONE-STEP [Suspect]
     Indication: POST COITAL CONTRACEPTION
     Dosage: 1.5 MILLIGRAM;
     Route: 048
     Dates: start: 20110614, end: 20110614
  3. LEVOTHYROXINE SODIUM [Concomitant]
     Indication: HYPOTHYROIDISM

REACTIONS (1)
  - NAUSEA [None]
